FAERS Safety Report 14668058 (Version 1)
Quarter: 2018Q1

REPORT INFORMATION
  Report Type: Spontaneous
  Country: CA (occurrence: CA)
  Receive Date: 20180322
  Receipt Date: 20180322
  Transmission Date: 20180509
  Serious: Yes (Other)
  Sender: FDA-Public Use
  Company Number: CA-BAYER-2018-051494

PATIENT
  Age: 39 Year
  Sex: Female
  Weight: 63.49 kg

DRUGS (4)
  1. MIRENA [Suspect]
     Active Substance: LEVONORGESTREL
     Dosage: 20 MCG/24HR, CONT
     Route: 015
  2. FLAGYL [Concomitant]
     Active Substance: METRONIDAZOLE\METRONIDAZOLE HYDROCHLORIDE
  3. MIRENA [Suspect]
     Active Substance: LEVONORGESTREL
  4. CANESTEN [Concomitant]
     Active Substance: CLOTRIMAZOLE

REACTIONS (3)
  - Depression [Unknown]
  - Libido decreased [Unknown]
  - Bacterial vaginosis [Unknown]
